FAERS Safety Report 13164144 (Version 1)
Quarter: 2017Q1

REPORT INFORMATION
  Report Type: Spontaneous
  Country: HR (occurrence: HR)
  Receive Date: 20170130
  Receipt Date: 20170130
  Transmission Date: 20170428
  Serious: Yes (Hospitalization, Other)
  Sender: FDA-Public Use
  Company Number: HR-BAYER-2017-012592

PATIENT
  Age: 39 Year
  Sex: Female
  Weight: 50 kg

DRUGS (1)
  1. ASPIRIN. [Suspect]
     Active Substance: ASPIRIN
     Indication: SPINAL PAIN
     Dosage: 3000 MG, UNK
     Route: 048
     Dates: start: 20170105, end: 20170109

REACTIONS (4)
  - Meteoropathy [Recovering/Resolving]
  - Aggression [Recovering/Resolving]
  - Diarrhoea [Recovering/Resolving]
  - Irritability [Recovering/Resolving]

NARRATIVE: CASE EVENT DATE: 20170105
